FAERS Safety Report 6582593-1 (Version None)
Quarter: 2010Q1

REPORT INFORMATION
  Report Type: 
  Country: None (occurrence: None)
  Receive Date: 20100216
  Receipt Date: 20100209
  Transmission Date: 20100710
  Serious: Yes (Hospitalization, Other)
  Sender: FDA-Public Use
  Company Number: US-RB-019698-09

PATIENT
  Age: 49 Year
  Sex: Female

DRUGS (2)
  1. SUBOXONE [Suspect]
     Route: 060
     Dates: start: 20090801
  2. SUBOXONE [Suspect]
     Dosage: UNKNOWN DOSING INFORMATION
     Route: 060
     Dates: start: 20070101, end: 20080101

REACTIONS (9)
  - CONSTIPATION [None]
  - CONVULSION [None]
  - FATIGUE [None]
  - HEAD INJURY [None]
  - HEADACHE [None]
  - INSOMNIA [None]
  - NECK PAIN [None]
  - PEPTIC ULCER [None]
  - SWELLING FACE [None]
